FAERS Safety Report 23605461 (Version 1)
Quarter: 2024Q1

REPORT INFORMATION
  Report Type: Spontaneous
  Country: CA (occurrence: CA)
  Receive Date: 20240307
  Receipt Date: 20240307
  Transmission Date: 20240410
  Serious: Yes (Hospitalization, Disabling, Other)
  Sender: FDA-Public Use
  Company Number: CA-TEVA-VS-3163357

PATIENT
  Age: 38 Year
  Sex: Male

DRUGS (2)
  1. DEXTROAMPHETAMINE SULFATE [Suspect]
     Active Substance: DEXTROAMPHETAMINE SULFATE
     Indication: Cognitive disorder
     Dosage: DOSE FORM: CAPSULE, SUSTAINED RELEASE
     Route: 048
  2. DEXTROAMPHETAMINE SULFATE [Suspect]
     Active Substance: DEXTROAMPHETAMINE SULFATE
     Indication: Cognitive disorder
     Dosage: DOSE FORM: CAPSULE, SUSTAINED RELEASE
     Route: 048

REACTIONS (3)
  - Inadequate analgesia [Recovering/Resolving]
  - Pain [Recovering/Resolving]
  - Withdrawal syndrome [Recovering/Resolving]
